FAERS Safety Report 15023803 (Version 1)
Quarter: 2018Q2

REPORT INFORMATION
  Report Type: Spontaneous
  Country: US (occurrence: US)
  Receive Date: 20180618
  Receipt Date: 20180618
  Transmission Date: 20180711
  Serious: Yes (Other)
  Sender: FDA-Public Use
  Company Number: US-009507513-1806USA004942

PATIENT
  Sex: Male

DRUGS (6)
  1. COZAAR [Suspect]
     Active Substance: LOSARTAN POTASSIUM
     Indication: ESSENTIAL HYPERTENSION
     Dosage: 100 MG, QD
     Route: 048
     Dates: start: 200306, end: 201212
  2. NORVASC [Concomitant]
     Active Substance: AMLODIPINE BESYLATE
  3. DIURETIC (UNSPECIFIED) [Concomitant]
     Active Substance: UNSPECIFIED INGREDIENT
  4. CHLORTHALIDONE. [Concomitant]
     Active Substance: CHLORTHALIDONE
  5. LIPITOR [Concomitant]
     Active Substance: ATORVASTATIN CALCIUM
  6. ACCUPRIL [Suspect]
     Active Substance: QUINAPRIL HYDROCHLORIDE
     Dosage: UNK

REACTIONS (4)
  - Prostate cancer [Unknown]
  - Uveitis [Not Recovered/Not Resolved]
  - Escherichia infection [Unknown]
  - Angiotensin converting enzyme decreased [Not Recovered/Not Resolved]

NARRATIVE: CASE EVENT DATE: 2013
